FAERS Safety Report 5406778-2 (Version None)
Quarter: 2007Q3

REPORT INFORMATION
  Report Type: 
  Country: None (occurrence: None)
  Receive Date: 20070807
  Receipt Date: 20070727
  Transmission Date: 20080115
  Serious: Yes (Disabling)
  Sender: FDA-Public Use
  Company Number: PHHO2006AT17586

PATIENT
  Age: 37 Year
  Sex: Male

DRUGS (8)
  1. SEROQUEL [Suspect]
     Dates: start: 20060926, end: 20061002
  2. ABILIFY [Suspect]
     Dates: start: 20060919, end: 20061004
  3. CONVULEX [Suspect]
     Dates: start: 20060928, end: 20060930
  4. NOZINAN [Suspect]
     Dates: start: 20060925, end: 20061002
  5. AKINETON [Suspect]
     Dates: start: 20060929, end: 20061009
  6. GEWACALM [Suspect]
     Dates: start: 20060919, end: 20061011
  7. TEBOFORTAN [Suspect]
     Dates: start: 20060928, end: 20061003
  8. LEPONEX [Suspect]
     Indication: PERSONALITY DISORDER
     Dosage: 300 MG/DAY
     Dates: start: 20060928, end: 20060930

REACTIONS (9)
  - BACK PAIN [None]
  - BLOOD CREATINE PHOSPHOKINASE INCREASED [None]
  - COGWHEEL RIGIDITY [None]
  - EXTRAPYRAMIDAL DISORDER [None]
  - HAEMATURIA [None]
  - LEUKOCYTOSIS [None]
  - LIVER FUNCTION TEST ABNORMAL [None]
  - MYOGLOBIN BLOOD INCREASED [None]
  - RHABDOMYOLYSIS [None]
